FAERS Safety Report 21204207 (Version 2)
Quarter: 2022Q4

REPORT INFORMATION
  Report Type: Spontaneous
  Country: TW (occurrence: TW)
  Receive Date: 20220812
  Receipt Date: 20221009
  Transmission Date: 20230113
  Serious: Yes (Hospitalization, Other)
  Sender: FDA-Public Use
  Company Number: TW-PFIZER INC-PV202200039767

PATIENT
  Age: 51 Year
  Sex: Male

DRUGS (2)
  1. ENBREL [Suspect]
     Active Substance: ETANERCEPT
     Indication: Rheumatoid arthritis
     Dosage: 25 MG, BIW
     Route: 058
     Dates: start: 20080202, end: 20141014
  2. ENBREL [Suspect]
     Active Substance: ETANERCEPT
     Dosage: 50 MG, QW
     Route: 058
     Dates: start: 20141015, end: 20220808

REACTIONS (3)
  - Testicular seminoma (pure) [Not Recovered/Not Resolved]
  - Scrotal cancer [Not Recovered/Not Resolved]
  - Scrotal infection [Unknown]

NARRATIVE: CASE EVENT DATE: 20220711
